FAERS Safety Report 7561729-X (Version None)
Quarter: 2011Q2

REPORT INFORMATION
  Report Type: 
  Country: None (occurrence: None)
  Receive Date: 20110621
  Receipt Date: 20110315
  Transmission Date: 20111010
  Serious: No
  Sender: FDA-Public Use
  Company Number: US-ASTRAZENECA-2011SE14481

PATIENT
  Age: 64 Year
  Sex: Female
  Weight: 89.4 kg

DRUGS (2)
  1. RHINOCORT [Suspect]
     Indication: HYPERSENSITIVITY
     Route: 045
     Dates: start: 20060101
  2. FENOFEXADINE [Concomitant]

REACTIONS (4)
  - EYELID OEDEMA [None]
  - DRUG DOSE OMISSION [None]
  - CATARACT [None]
  - SINUSITIS [None]
